FAERS Safety Report 7282922-X (Version None)
Quarter: 2011Q1

REPORT INFORMATION
  Report Type: 
  Country: None (occurrence: None)
  Receive Date: 20110209
  Receipt Date: 20101227
  Transmission Date: 20110831
  Serious: Yes (Hospitalization, Other)
  Sender: FDA-Public Use
  Company Number: US-BAYER-200938995NA

PATIENT
  Sex: Female
  Weight: 52 kg

DRUGS (5)
  1. VITAMIN B-12 [Concomitant]
     Indication: PRODUCT USED FOR UNKNOWN INDICATION
  2. YAZ [Suspect]
     Indication: PRODUCT USED FOR UNKNOWN INDICATION
     Route: 048
     Dates: start: 20070701, end: 20090914
  3. ADVIL [Concomitant]
     Indication: PRODUCT USED FOR UNKNOWN INDICATION
  4. YASMIN [Suspect]
     Indication: PRODUCT USED FOR UNKNOWN INDICATION
  5. ANTIBIOTICS [Concomitant]
     Indication: PRODUCT USED FOR UNKNOWN INDICATION
     Dates: start: 19940101, end: 20090615

REACTIONS (7)
  - ABDOMINAL PAIN UPPER [None]
  - GASTRITIS [None]
  - CHOLECYSTITIS CHRONIC [None]
  - HEPATITIS [None]
  - PANCREATIC ENZYMES INCREASED [None]
  - LIVER FUNCTION TEST ABNORMAL [None]
  - APPENDICITIS [None]
